FAERS Safety Report 8204989-4 (Version None)
Quarter: 2012Q1

REPORT INFORMATION
  Report Type: 
  Country: None (occurrence: None)
  Receive Date: 20120313
  Receipt Date: 20120229
  Transmission Date: 20120608
  Serious: Yes (Hospitalization)
  Sender: FDA-Public Use
  Company Number: FR-JNJFOC-20120304753

PATIENT
  Sex: Male

DRUGS (1)
  1. TRAMADOL HCL [Suspect]
     Indication: BACK PAIN
     Route: 048
     Dates: start: 20111028, end: 20111028

REACTIONS (5)
  - COLD SWEAT [None]
  - VISION BLURRED [None]
  - DYSARTHRIA [None]
  - NAUSEA [None]
  - ASTHENIA [None]
